FAERS Safety Report 4574069-8 (Version None)
Quarter: 2005Q1

REPORT INFORMATION
  Report Type: 
  Country: None (occurrence: None)
  Receive Date: 20050204
  Receipt Date: 20050121
  Transmission Date: 20050727
  Serious: Yes (Other)
  Sender: FDA-Public Use
  Company Number: 2004058976

PATIENT
  Age: 35 Year
  Sex: Female
  Weight: 54.4316 kg

DRUGS (3)
  1. RELPAX [Suspect]
     Indication: MIGRAINE
     Dosage: (40 MG), ORAL
     Route: 048
     Dates: start: 20040301, end: 20040901
  2. ETHINYLESTRADIOL/ETONOGESTREL (ETHINYLESTRADIOL ETONOGESTREL) [Concomitant]
  3. EXCEDRIN/USA/ (ACETYLSALICYLIC ACID, CAFFEINE, PARACETAMOL, SALICYLAMI [Concomitant]

REACTIONS (7)
  - DRUG EFFECT DECREASED [None]
  - FATIGUE [None]
  - MENSTRUATION IRREGULAR [None]
  - MIGRAINE [None]
  - OLIGOMENORRHOEA [None]
  - PREGNANCY [None]
  - SOMNOLENCE [None]
